FAERS Safety Report 25589693 (Version 3)
Quarter: 2025Q3

REPORT INFORMATION
  Report Type: Spontaneous
  Country: JP (occurrence: JP)
  Receive Date: 20250722
  Receipt Date: 20250917
  Transmission Date: 20251021
  Serious: Yes (Death, Other)
  Sender: GLAXOSMITHKLINE
  Company Number: JP-GSK-JP2025JPN092054

PATIENT
  Age: 82 Year
  Sex: Male

DRUGS (11)
  1. DAPRODUSTAT [Suspect]
     Active Substance: DAPRODUSTAT
     Indication: Nephrogenic anaemia
  2. DARBEPOETIN ALFA [Concomitant]
     Active Substance: DARBEPOETIN ALFA
     Indication: Nephrogenic anaemia
  3. CLOPIDOGREL [Concomitant]
     Active Substance: CLOPIDOGREL BISULFATE
  4. ALFACALCIDOL [Concomitant]
     Active Substance: ALFACALCIDOL
  5. NICORANDIL [Concomitant]
     Active Substance: NICORANDIL
     Dosage: 5 MG, TID, AFTER EVERY MEAL
  6. DILTIAZEM HYDROCHLORIDE [Concomitant]
     Active Substance: DILTIAZEM HYDROCHLORIDE
  7. LANSOPRAZOLE [Concomitant]
     Active Substance: LANSOPRAZOLE
     Dosage: 15 MG, 1D, AFTER DINNER
  8. RAMELTEON [Concomitant]
     Active Substance: RAMELTEON
  9. ZOPICLONE [Concomitant]
     Active Substance: ZOPICLONE
     Dosage: 7.5 MG, 1D, BEFORE BEDTIME
  10. DAYVIGO [Concomitant]
     Active Substance: LEMBOREXANT
     Dosage: 10 MG, 1D, RIGHT BEFORE BEDTIME
  11. NIFEDIPINE [Concomitant]
     Active Substance: NIFEDIPINE

REACTIONS (2)
  - Gastrointestinal haemorrhage [Fatal]
  - Haematochezia [Unknown]

NARRATIVE: CASE EVENT DATE: 20250614
